FAERS Safety Report 9485599 (Version 2)
Quarter: 2014Q2

REPORT INFORMATION
  Report Type: Spontaneous
  Country: FR (occurrence: FR)
  Receive Date: 20130829
  Receipt Date: 20140401
  Transmission Date: 20141212
  Serious: Yes (Death, Hospitalization)
  Sender: FDA-Public Use
  Company Number: FR-ROCHE-1267138

PATIENT
  Age: 48 Year
  Sex: Female

DRUGS (7)
  1. NUTROPIN AQ [Suspect]
     Indication: GROWTH HORMONE DEFICIENCY
     Dosage: 10MG / 2ML
     Route: 058
     Dates: start: 200706, end: 20071002
  2. HYDROCORTISONE [Concomitant]
     Indication: HYPOPITUITARISM
     Route: 048
  3. MINIRIN [Concomitant]
     Indication: HYPOPITUITARISM
     Route: 048
  4. ESTREVA [Concomitant]
     Indication: HYPOPITUITARISM
     Dosage: 1 DOSAGE FORMS
     Route: 048
  5. UTROGESTAN [Concomitant]
     Indication: HYPOPITUITARISM
     Route: 048
  6. LEVOTHYROX [Concomitant]
     Indication: HYPOPITUITARISM
     Route: 048
  7. FLUDROCORTISONE [Concomitant]
     Indication: HYPOPITUITARISM
     Route: 048

REACTIONS (2)
  - Ovarian cancer metastatic [Fatal]
  - Metastases to peritoneum [Unknown]
